FAERS Safety Report 6029294-6 (Version None)
Quarter: 2009Q1

REPORT INFORMATION
  Report Type: 
  Country: None (occurrence: None)
  Receive Date: 20090106
  Receipt Date: 20081219
  Transmission Date: 20090719
  Serious: No
  Sender: FDA-Public Use
  Company Number: US-B.I. PHARMACEUTICALS,INC./RIDGEFIELD-2008-BP-16705BP

PATIENT
  Sex: Female

DRUGS (3)
  1. SPIRIVA [Suspect]
     Indication: CHRONIC OBSTRUCTIVE PULMONARY DISEASE
     Dosage: 18MCG
     Route: 055
     Dates: start: 20051101
  2. ALBUTEROL [Concomitant]
     Indication: SPUTUM DISCOLOURED
     Dates: start: 20081028
  3. ALBUTEROL [Concomitant]
     Indication: DYSPNOEA

REACTIONS (2)
  - DYSPNOEA [None]
  - SPUTUM DISCOLOURED [None]
